FAERS Safety Report 11794392 (Version 2)
Quarter: 2016Q2

REPORT INFORMATION
  Report Type: Spontaneous
  Country: DE (occurrence: DE)
  Receive Date: 20151202
  Receipt Date: 20160427
  Transmission Date: 20160815
  Serious: Yes (Hospitalization)
  Sender: FDA-Public Use
  Company Number: DE-ALLERGAN-1524837US

PATIENT
  Age: 51 Year
  Sex: Female
  Weight: 75 kg

DRUGS (2)
  1. BOTOX [Suspect]
     Active Substance: ONABOTULINUMTOXINA
     Indication: SKIN WRINKLING
     Dosage: 15 UNITS, SINGLE
     Route: 030
     Dates: start: 20151028, end: 20151028
  2. BOTOX [Suspect]
     Active Substance: ONABOTULINUMTOXINA
     Indication: BRUXISM
     Dosage: 30 UNITS, SINGLE
     Route: 030

REACTIONS (10)
  - Off label use [Unknown]
  - Hypotonia [Unknown]
  - Heart rate increased [Unknown]
  - Abdominal pain upper [Not Recovered/Not Resolved]
  - Haematochezia [Unknown]
  - Dyspnoea [Not Recovered/Not Resolved]
  - Ileus paralytic [Not Recovered/Not Resolved]
  - Dizziness [Unknown]
  - Swelling face [Unknown]
  - Constipation [Unknown]

NARRATIVE: CASE EVENT DATE: 20151102
